FAERS Safety Report 25007530 (Version 1)
Quarter: 2025Q1

REPORT INFORMATION
  Report Type: Spontaneous
  Country: US (occurrence: US)
  Receive Date: 20250225
  Receipt Date: 20250225
  Transmission Date: 20250408
  Serious: No
  Sender: MSN LABORATORIES PRIVATE LIMITED
  Company Number: US-MSNLABS-2025MSNSPO00398

PATIENT

DRUGS (1)
  1. LOSARTAN POTASSIUM [Suspect]
     Active Substance: LOSARTAN POTASSIUM
     Indication: Hypertension
     Route: 065

REACTIONS (6)
  - Lip dry [Unknown]
  - Oral mucosal blistering [Unknown]
  - Lip erythema [Unknown]
  - Oropharyngeal discomfort [Unknown]
  - Sleep disorder [Unknown]
  - Palpitations [Unknown]
